FAERS Safety Report 4893121-0 (Version None)
Quarter: 2005Q4

REPORT INFORMATION
  Report Type: 
  Country: None (occurrence: None)
  Receive Date: 20051223
  Receipt Date: 20041229
  Transmission Date: 20060501
  Serious: Yes (Other)
  Sender: FDA-Public Use
  Company Number: PHEH2004US13748

PATIENT
  Sex: Male

DRUGS (2)
  1. CLOZARIL [Suspect]
     Dosage: 450 MG, QD, ORAL
     Route: 048
  2. ZYPREXA [Concomitant]

REACTIONS (1)
  - HYPONATRAEMIA [None]
